FAERS Safety Report 5119084-0 (Version None)
Quarter: 2006Q3

REPORT INFORMATION
  Report Type: 
  Country: None (occurrence: None)
  Receive Date: 20060927
  Receipt Date: 20060922
  Transmission Date: 20061208
  Serious: Yes (Death, Hospitalization)
  Sender: FDA-Public Use
  Company Number: CLOF-10314

PATIENT
  Age: 58 Year
  Sex: Male

DRUGS (18)
  1. CLOFARABINE [Suspect]
     Dosage: 10 MG/M2 DAILY IV
     Route: 042
     Dates: start: 20060801, end: 20060803
  2. CLOFARABINE [Suspect]
     Dosage: 10 MG/M2 DAILY IV
     Route: 042
     Dates: start: 20060808, end: 20060810
  3. CYCLOPHOSPHAMIDE [Suspect]
     Indication: ACUTE MYELOID LEUKAEMIA RECURRENT
     Dosage: 200 MG/M2 DAILY IV
     Route: 042
     Dates: start: 20060731, end: 20060801
  4. CYCLOPHOSPHAMIDE [Suspect]
     Indication: ACUTE MYELOID LEUKAEMIA RECURRENT
     Dosage: 400 MG/M2 DAILY IV
     Route: 042
     Dates: start: 20060802, end: 20060803
  5. CYCLOPHOSPHAMIDE [Suspect]
     Indication: ACUTE MYELOID LEUKAEMIA RECURRENT
     Dosage: 400 MG/M2 DAILY IV
     Route: 042
     Dates: start: 20060808, end: 20060810
  6. ACETAMINOPHEN [Concomitant]
  7. ALLOPURINOL [Concomitant]
  8. HYDROCORTISONE [Concomitant]
  9. BACTRIM [Concomitant]
  10. VORICONAZOLE [Concomitant]
  11. AUGMENTIN [Concomitant]
  12. CIPROFLOXACIN [Concomitant]
  13. HYDREA [Concomitant]
  14. GABAPENTIN [Concomitant]
  15. OXYCODONE HCL [Concomitant]
  16. ATIVAN [Concomitant]
  17. ATARAX [Concomitant]
  18. IMODIUM [Concomitant]

REACTIONS (22)
  - ANXIETY [None]
  - ASTHENIA [None]
  - ATELECTASIS [None]
  - BLOOD CREATININE INCREASED [None]
  - BLOOD PHOSPHORUS DECREASED [None]
  - DEHYDRATION [None]
  - DERMATITIS CONTACT [None]
  - DIARRHOEA [None]
  - DYSPNOEA [None]
  - HAEMATOCRIT DECREASED [None]
  - HYPOTENSION [None]
  - INTERSTITIAL LUNG DISEASE [None]
  - LUNG INFILTRATION [None]
  - MALIGNANT NEOPLASM PROGRESSION [None]
  - MENTAL STATUS CHANGES [None]
  - NAUSEA [None]
  - OEDEMA PERIPHERAL [None]
  - OXYGEN SATURATION DECREASED [None]
  - PLATELET COUNT DECREASED [None]
  - RASH MACULO-PAPULAR [None]
  - SEPSIS [None]
  - TACHYCARDIA [None]
